FAERS Safety Report 4330442-4 (Version None)
Quarter: 2004Q1

REPORT INFORMATION
  Report Type: 
  Country: None (occurrence: None)
  Receive Date: 20040330
  Receipt Date: 20040317
  Transmission Date: 20041129
  Serious: Yes (Death, Life-Threatening, Hospitalization)
  Sender: FDA-Public Use
  Company Number: GB-JNJFOC-20040303866

PATIENT
  Age: 65 Year
  Sex: Female

DRUGS (6)
  1. REMICADE [Suspect]
     Indication: RHEUMATOID ARTHRITIS
     Dosage: INTRAVENOUS
     Route: 042
     Dates: start: 20030609, end: 20030701
  2. METHOTREXATE [Concomitant]
  3. FOLIC ACID [Concomitant]
  4. BENDROFLUAZIDE (BENDROFLUMETHIAZIDE) [Concomitant]
  5. SALBUTAMOL (SALBUTAMOL) [Concomitant]
  6. CO-PROXAMOL (APOREX) [Concomitant]

REACTIONS (2)
  - RENAL FAILURE [None]
  - SEPSIS [None]
